FAERS Safety Report 6899889-6 (Version None)
Quarter: 2010Q3

REPORT INFORMATION
  Report Type: 
  Country: None (occurrence: None)
  Receive Date: 20100803
  Receipt Date: 20080125
  Transmission Date: 20110219
  Serious: Yes (Other)
  Sender: FDA-Public Use
  Company Number: US-PFIZER INC-2007105049

PATIENT
  Age: 43 Year
  Sex: Female
  Weight: 49.9 kg

DRUGS (4)
  1. LYRICA [Suspect]
     Indication: FIBROMYALGIA
     Route: 048
     Dates: start: 20070809, end: 20071217
  2. GABAPENTIN [Suspect]
     Indication: FIBROMYALGIA
     Dates: start: 20071201, end: 20071201
  3. ZANAFLEX [Concomitant]
  4. AMBIEN [Concomitant]

REACTIONS (2)
  - FACE OEDEMA [None]
  - VISION BLURRED [None]
